FAERS Safety Report 12606184 (Version 1)
Quarter: 2016Q3

REPORT INFORMATION
  Report Type: Spontaneous
  Country: US (occurrence: None)
  Receive Date: 20160728
  Receipt Date: 20160728
  Transmission Date: 20161109
  Serious: No
  Sender: FDA-Public Use
  Company Number: None

PATIENT
  Age: 66 Year
  Sex: Male

DRUGS (1)
  1. HARVONI [Suspect]
     Active Substance: LEDIPASVIR\SOFOSBUVIR
     Indication: CHRONIC HEPATITIS C

REACTIONS (5)
  - Musculoskeletal pain [None]
  - Chest discomfort [None]
  - Movement disorder [None]
  - Neck pain [None]
  - Fatigue [None]

NARRATIVE: CASE EVENT DATE: 20160727
